FAERS Safety Report 4360908-2 (Version None)
Quarter: 2004Q2

REPORT INFORMATION
  Report Type: 
  Country: None (occurrence: None)
  Receive Date: 20040517
  Receipt Date: 20040506
  Transmission Date: 20050107
  Serious: Yes (Hospitalization)
  Sender: FDA-Public Use
  Company Number: JP-JNJFOC-20040502199

PATIENT

DRUGS (4)
  1. LEVOFLOXACIN [Suspect]
     Indication: UPPER RESPIRATORY TRACT INFLAMMATION
     Dosage: 300 MG, 1 IN 1 DAY, ORAL
     Route: 048
     Dates: start: 20040428, end: 20040507
  2. DASEN (SERRAPEPTASE) [Suspect]
     Indication: UPPER RESPIRATORY TRACT INFLAMMATION
     Dosage: ORAL
     Route: 048
     Dates: start: 20040428, end: 20040507
  3. MUCOSTA (REBAMIPIDE) [Suspect]
     Dosage: ORAL
     Route: 048
     Dates: start: 20040428, end: 20040507
  4. PL (ALL OTHER COLD COMBINATION PREPARATIONS) [Suspect]
     Dosage: ORAL
     Route: 048
     Dates: start: 20040428, end: 20040507

REACTIONS (1)
  - RHABDOMYOLYSIS [None]
